FAERS Safety Report 18927560 (Version 1)
Quarter: 2021Q1

REPORT INFORMATION
  Report Type: Spontaneous
  Country: US (occurrence: US)
  Receive Date: 20210223
  Receipt Date: 20210223
  Transmission Date: 20210420
  Serious: No
  Sender: FDA-Public Use
  Company Number: US-GLAXOSMITHKLINE-USCH2021GSK006284

PATIENT
  Sex: Male

DRUGS (8)
  1. IBUPROFEN. [Suspect]
     Active Substance: IBUPROFEN
     Indication: MALAISE
  2. IBUPROFEN. [Suspect]
     Active Substance: IBUPROFEN
     Indication: LYMPHADENOPATHY
  3. IBUPROFEN. [Suspect]
     Active Substance: IBUPROFEN
     Indication: FATIGUE
  4. IBUPROFEN. [Suspect]
     Active Substance: IBUPROFEN
     Indication: INJECTION SITE PAIN
     Dosage: UNK
  5. IBUPROFEN. [Suspect]
     Active Substance: IBUPROFEN
     Indication: INJECTION SITE SWELLING
  6. IBUPROFEN. [Suspect]
     Active Substance: IBUPROFEN
     Indication: MYALGIA
  7. IBUPROFEN. [Suspect]
     Active Substance: IBUPROFEN
     Indication: HEADACHE
  8. IBUPROFEN. [Suspect]
     Active Substance: IBUPROFEN
     Indication: CHILLS

REACTIONS (1)
  - Product use in unapproved indication [Unknown]
